FAERS Safety Report 6795369-7 (Version None)
Quarter: 2010Q2

REPORT INFORMATION
  Report Type: 
  Country: None (occurrence: None)
  Receive Date: 20100625
  Receipt Date: 20100614
  Transmission Date: 20101027
  Serious: Yes (Other)
  Sender: FDA-Public Use
  Company Number: CH-PFIZER INC-2010073892

PATIENT
  Age: 11 Year
  Sex: Female
  Weight: 34 kg

DRUGS (4)
  1. ZOLOFT [Suspect]
     Indication: SELECTIVE MUTISM
     Dosage: 25 MG, 1X/DAY
     Route: 048
     Dates: start: 20090425, end: 20090501
  2. ZOLOFT [Suspect]
     Indication: OBSESSIVE-COMPULSIVE DISORDER
     Dosage: 50 MG, 1X/DAY
     Route: 048
     Dates: end: 20090629
  3. ZOLOFT [Suspect]
     Dosage: 2 ML, 1X/DAY OR 40MG DAILY
     Route: 048
     Dates: start: 20091117
  4. ZOLOFT [Suspect]
     Dosage: UNK
     Route: 048

REACTIONS (2)
  - AGGRESSION [None]
  - OBSESSIVE-COMPULSIVE DISORDER [None]
